FAERS Safety Report 8199836-3 (Version None)
Quarter: 2012Q1

REPORT INFORMATION
  Report Type: 
  Country: None (occurrence: None)
  Receive Date: 20120312
  Receipt Date: 20120305
  Transmission Date: 20120608
  Serious: No
  Sender: FDA-Public Use
  Company Number: US-BIOGENIDEC-2011BI002424

PATIENT
  Sex: Female

DRUGS (7)
  1. REBIF [Concomitant]
     Indication: MUSCULOSKELETAL DISORDER
  2. DILANTIN [Concomitant]
     Indication: MUSCULOSKELETAL DISORDER
  3. NEURONTIN [Concomitant]
     Indication: MUSCULOSKELETAL DISORDER
  4. DILANTIN [Concomitant]
     Indication: NEUROPATHY PERIPHERAL
  5. TYSABRI [Suspect]
     Indication: MULTIPLE SCLEROSIS
     Route: 042
     Dates: start: 20101130, end: 20111209
  6. NEURONTIN [Concomitant]
     Indication: NEUROPATHY PERIPHERAL
  7. LASIX [Concomitant]
     Indication: SWELLING
     Dates: start: 20100101

REACTIONS (13)
  - MULTIPLE SCLEROSIS RELAPSE [None]
  - RENAL DISORDER [None]
  - DYSURIA [None]
  - SWELLING FACE [None]
  - MULTIPLE SCLEROSIS [None]
  - TRIGEMINAL NEURALGIA [None]
  - FAECAL INCONTINENCE [None]
  - ASTHENIA [None]
  - OEDEMA PERIPHERAL [None]
  - STRESS [None]
  - JOINT SWELLING [None]
  - ANXIETY [None]
  - URINARY RETENTION [None]
